FAERS Safety Report 4662024-9 (Version None)
Quarter: 2005Q2

REPORT INFORMATION
  Report Type: 
  Country: None (occurrence: None)
  Receive Date: 20050516
  Receipt Date: 20040323
  Transmission Date: 20051028
  Serious: Yes (Death)
  Sender: FDA-Public Use
  Company Number: 200514192GDDC

PATIENT
  Sex: 0

DRUGS (10)
  1. DOCETAXEL [Suspect]
     Indication: NEOPLASM MALIGNANT
     Route: 042
  2. MELPHALAN [Suspect]
     Indication: NEOPLASM MALIGNANT
     Dosage: DOSE: 165 MG/M2 OVER 15 MINUTES DAYS -5 TO -3
     Route: 042
  3. CARBOPLATIN [Suspect]
     Indication: NEOPLASM MALIGNANT
     Route: 042
  4. DEXAMETHASONE [Concomitant]
     Route: 048
  5. PROCHLORPERAZINE [Concomitant]
     Route: 048
  6. ONDANSETRON [Concomitant]
     Route: 042
  7. LEVOFLOXACIN [Concomitant]
     Route: 048
  8. ACYCLOVIR [Concomitant]
     Route: 048
  9. FLUCONAZOLE [Concomitant]
     Route: 048
  10. GLUTAMINE [Concomitant]
     Dosage: DOSE: MOUTHWASH
     Route: 048

REACTIONS (2)
  - DRUG TOXICITY [None]
  - ENTEROCOLITIS [None]
